FAERS Safety Report 8226924-5 (Version None)
Quarter: 2012Q1

REPORT INFORMATION
  Report Type: 
  Country: None (occurrence: None)
  Receive Date: 20120322
  Receipt Date: 20111212
  Transmission Date: 20120608
  Serious: No
  Sender: FDA-Public Use
  Company Number: US-MYLANLABS-2011S1024564

PATIENT
  Age: 63 Year
  Sex: Female
  Weight: 63.5 kg

DRUGS (6)
  1. CHLORTHALIDONE [Suspect]
     Indication: BLOOD PRESSURE INCREASED
     Route: 048
     Dates: start: 20111020, end: 20111105
  2. VITAMIN D [Concomitant]
  3. MULTI-VITAMIN [Concomitant]
  4. CALCIUM CARBONATE [Concomitant]
  5. MAGNESIUM [Concomitant]
  6. ESTRING [Interacting]
     Indication: VAGINAL ABSCESS
     Dates: end: 20111105

REACTIONS (5)
  - FUNCTIONAL GASTROINTESTINAL DISORDER [None]
  - ABDOMINAL DISCOMFORT [None]
  - DRUG INTERACTION [None]
  - DIABETES MELLITUS [None]
  - DIARRHOEA [None]
